FAERS Safety Report 9774757 (Version 1)
Quarter: 2013Q4

REPORT INFORMATION
  Report Type: Spontaneous
  Country: US (occurrence: US)
  Receive Date: 20131220
  Receipt Date: 20131220
  Transmission Date: 20140711
  Serious: No
  Sender: FDA-Public Use
  Company Number: US-PFIZER INC-2013364341

PATIENT
  Age: 50 Year
  Sex: Male
  Weight: 65.76 kg

DRUGS (2)
  1. EFFEXOR XR [Suspect]
     Indication: MAJOR DEPRESSION
     Dosage: UNK, 1X/DAY
     Route: 048
     Dates: start: 2009
  2. EFFEXOR XR [Suspect]
     Dosage: 225 MG, 1X/DAY
     Route: 048

REACTIONS (2)
  - Withdrawal syndrome [Unknown]
  - Paraesthesia [Unknown]
